FAERS Safety Report 24128875 (Version 1)
Quarter: 2024Q3

REPORT INFORMATION
  Report Type: Spontaneous
  Country: US (occurrence: US)
  Receive Date: 20240723
  Receipt Date: 20240723
  Transmission Date: 20241017
  Serious: Yes (Other)
  Sender: TEVA
  Company Number: US-TEVA-VS-3222179

PATIENT
  Age: 71 Year
  Sex: Male

DRUGS (3)
  1. CLONIDINE [Suspect]
     Active Substance: CLONIDINE
     Indication: Adverse drug reaction
     Route: 062
     Dates: start: 2023
  2. CLONIDINE [Suspect]
     Active Substance: CLONIDINE
     Route: 062
     Dates: start: 202307
  3. CLONIDINE HYDROCHLORIDE [Suspect]
     Active Substance: CLONIDINE HYDROCHLORIDE
     Indication: Adverse drug reaction
     Dosage: TAKING TWO 0.1 MG TABLETS AT 11 O CLOCK AT NIGHT, 0.1 MG AT 7 A.M., AND 1 0.1 MG TABLET AT 3 PM F...
     Route: 048

REACTIONS (13)
  - Hypertensive crisis [Unknown]
  - Heart rate increased [Unknown]
  - Withdrawal hypertension [Unknown]
  - Wrong technique in product usage process [Unknown]
  - Therapeutic product effect decreased [Unknown]
  - Feeling abnormal [Unknown]
  - Product adhesion issue [Unknown]
  - Blood pressure increased [Unknown]
  - Product use in unapproved indication [Unknown]
  - Therapeutic response shortened [Unknown]
  - Drug ineffective [Unknown]
  - Intentional product misuse [Unknown]
  - Drug level decreased [Unknown]
